FAERS Safety Report 24263685 (Version 1)
Quarter: 2024Q3

REPORT INFORMATION
  Report Type: Spontaneous
  Country: US (occurrence: US)
  Receive Date: 20240829
  Receipt Date: 20240829
  Transmission Date: 20241016
  Serious: Yes (Other)
  Sender: HIKMA
  Company Number: US-HIKMA PHARMACEUTICALS USA INC.-US-H14001-24-07942

PATIENT
  Age: 67 Year
  Sex: Male

DRUGS (4)
  1. HEPARIN [Suspect]
     Active Substance: HEPARIN SODIUM
     Dosage: 380000 ARBITRARY UNITS, OVER 2 HOURS
     Route: 065
  2. HEPARIN [Suspect]
     Active Substance: HEPARIN SODIUM
     Indication: Product used for unknown indication
     Dosage: 60000 ARBITRARY UNITS
     Route: 065
  3. ANDEXANET ALFA [Concomitant]
     Active Substance: ANDEXANET ALFA
     Indication: Anticoagulant therapy
     Dosage: 400 MILLIGRAM, AT A RATE OF 30 MG/MIN
     Route: 040
  4. ANDEXANET ALFA [Concomitant]
     Active Substance: ANDEXANET ALFA
     Dosage: 480 MILLIGRAM, AT A RATE OF 4 MG/MIN OVER 120 MIN
     Route: 041

REACTIONS (2)
  - Heparin resistance [Recovered/Resolved]
  - Rebound effect [Recovered/Resolved]
